FAERS Safety Report 9410534 (Version 1)
Quarter: 2013Q3

REPORT INFORMATION
  Report Type: Spontaneous
  Country: US (occurrence: None)
  Receive Date: 20130718
  Receipt Date: 20130718
  Transmission Date: 20140515
  Serious: Yes (Life-Threatening, Hospitalization)
  Sender: FDA-Public Use
  Company Number: None

PATIENT
  Age: 34 Year
  Sex: Female
  Weight: 63.5 kg

DRUGS (3)
  1. CYMBALTA [Suspect]
  2. ESTROGEN [Concomitant]
  3. KLONPIN [Concomitant]

REACTIONS (4)
  - Head injury [None]
  - Road traffic accident [None]
  - Screaming [None]
  - Suicide attempt [None]
